FAERS Safety Report 6466884-0 (Version None)
Quarter: 2009Q4

REPORT INFORMATION
  Report Type: 
  Country: None (occurrence: None)
  Receive Date: 20091202
  Receipt Date: 20091126
  Transmission Date: 20100525
  Serious: Yes (Death)
  Sender: FDA-Public Use
  Company Number: JP-PFIZER INC-2009275214

PATIENT
  Age: 78 Year
  Sex: Male

DRUGS (2)
  1. ALDACTONE [Suspect]
     Indication: CARDIAC FAILURE
     Route: 048
  2. FUROSEMIDE [Suspect]
     Indication: CARDIAC FAILURE
     Route: 048

REACTIONS (1)
  - INTESTINAL ISCHAEMIA [None]
